FAERS Safety Report 9667738 (Version 1)
Quarter: 2013Q4

REPORT INFORMATION
  Report Type: Spontaneous
  Country: US (occurrence: US)
  Receive Date: 20131104
  Receipt Date: 20131104
  Transmission Date: 20140711
  Serious: No
  Sender: FDA-Public Use
  Company Number: US-ENDO PHARMACEUTICALS INC.-PRED20110017

PATIENT
  Age: 68 Year
  Sex: Female
  Weight: 83.99 kg

DRUGS (9)
  1. PREDNISONE TABLETS 5MG [Suspect]
     Indication: DERMATOMYOSITIS
     Route: 048
     Dates: start: 201010
  2. PREDNISONE TABLETS 20MG [Suspect]
     Indication: DERMATOMYOSITIS
     Route: 048
     Dates: start: 201010
  3. HYDROCHLOROTHIAZIDE TABLETS [Suspect]
     Indication: HYPERTENSION
     Dosage: UNK
     Route: 048
  4. PREDNISONE [Suspect]
     Indication: DERMATOMYOSITIS
     Route: 048
     Dates: start: 201010
  5. METHOTREXATE [Suspect]
     Indication: DERMATOMYOSITIS
     Dosage: 1 TABLET
     Route: 048
     Dates: start: 201103
  6. ACYCLOVIR [Suspect]
     Indication: HERPES SIMPLEX
     Dosage: 1-2 TABLETS
     Route: 048
     Dates: start: 201011
  7. MULTIVITAMINS [Suspect]
     Indication: SUPPLEMENTATION THERAPY
     Dosage: 1 TABLET
     Route: 048
  8. HYDROXYCHLOROQUINE [Suspect]
     Indication: DERMATOMYOSITIS
     Dosage: UNK
     Route: 048
     Dates: start: 201103
  9. LEUCOVORIN CALCIUM [Suspect]
     Dosage: UNK
     Dates: start: 201104

REACTIONS (4)
  - Drug interaction [Not Recovered/Not Resolved]
  - Reaction to drug excipients [Not Recovered/Not Resolved]
  - Rash pruritic [Not Recovered/Not Resolved]
  - Urticaria [Not Recovered/Not Resolved]
